FAERS Safety Report 8918174 (Version 1)
Quarter: 2012Q4

REPORT INFORMATION
  Report Type: 
  Country: US (occurrence: US)
  Receive Date: 20121120
  Receipt Date: 20121120
  Transmission Date: 20130627
  Serious: No
  Sender: FDA-Public Use
  Company Number: US-ASTRAZENECA-2012SE85546

PATIENT
  Age: 72 Year
  Sex: Male

DRUGS (11)
  1. PRILOSEC [Suspect]
     Indication: GASTROOESOPHAGEAL REFLUX DISEASE
     Route: 048
  2. PRILOSEC [Suspect]
     Indication: HIATUS HERNIA
     Route: 048
  3. FUROSEMIDE [Concomitant]
     Indication: CARDIAC DISORDER
  4. ASPIRIN [Concomitant]
     Indication: ANTICOAGULANT THERAPY
  5. LOSARTAN [Concomitant]
  6. POTASSIUM CHLORIDE [Concomitant]
     Indication: SUPPLEMENTATION THERAPY
  7. SPIRONOLACTONE [Concomitant]
  8. ALPRAZOLAM [Concomitant]
     Indication: SLEEP DISORDER THERAPY
  9. MULTIVITAMIN [Concomitant]
     Indication: SUPPLEMENTATION THERAPY
  10. NEXIUM [Concomitant]
     Indication: GASTROOESOPHAGEAL REFLUX DISEASE
  11. NEXIUM [Concomitant]
     Indication: HIATUS HERNIA

REACTIONS (2)
  - Hiatus hernia [Unknown]
  - Drug ineffective [Unknown]
